FAERS Safety Report 10076376 (Version 1)
Quarter: 2014Q2

REPORT INFORMATION
  Report Type: Spontaneous
  Country: US (occurrence: US)
  Receive Date: 20140414
  Receipt Date: 20140414
  Transmission Date: 20141212
  Serious: No
  Sender: FDA-Public Use
  Company Number: US-PFIZER INC-2014103930

PATIENT
  Age: 46 Year
  Sex: Female
  Weight: 113 kg

DRUGS (5)
  1. LYRICA [Suspect]
     Indication: NEURALGIA
     Dosage: 75 MG, UNK
  2. LYRICA [Suspect]
     Indication: DIABETES MELLITUS
  3. LISINOPRIL [Concomitant]
     Indication: HYPERTENSION
     Dosage: 5 MG, 2X/DAY
  4. LANTUS [Concomitant]
     Indication: DIABETES MELLITUS
     Dosage: 75 UG, DAILY
  5. NOVOLOG [Concomitant]
     Indication: DIABETES MELLITUS
     Dosage: UNK, 3X/DAY

REACTIONS (1)
  - Drug ineffective [Unknown]
